FAERS Safety Report 8300648-8 (Version None)
Quarter: 2012Q2

REPORT INFORMATION
  Report Type: 
  Country: None (occurrence: None)
  Receive Date: 20120420
  Receipt Date: 20120411
  Transmission Date: 20120825
  Serious: Yes (Other)
  Sender: FDA-Public Use
  Company Number: PHHY2012JP027384

PATIENT
  Age: 79 Year
  Sex: Female

DRUGS (2)
  1. RIVASTIGMINE [Suspect]
     Dosage: 9 MG\24HR
     Route: 062
     Dates: start: 20120224, end: 20120301
  2. RIVASTIGMINE [Suspect]
     Indication: DEMENTIA ALZHEIMER'S TYPE
     Dosage: 4.5 MG\24HR
     Route: 062
     Dates: start: 20111224, end: 20120223

REACTIONS (3)
  - ASCITES [None]
  - DYSPNOEA [None]
  - CARDIAC FAILURE [None]
